FAERS Safety Report 19197071 (Version 1)
Quarter: 2021Q2

REPORT INFORMATION
  Report Type: Spontaneous
  Country: US (occurrence: US)
  Receive Date: 20210430
  Receipt Date: 20210430
  Transmission Date: 20210717
  Serious: Yes (Death, Other)
  Sender: FDA-Public Use
  Company Number: US-INSUD PHARMA-2104US00480

PATIENT

DRUGS (3)
  1. NUVESSA [Suspect]
     Active Substance: METRONIDAZOLE
     Indication: COLITIS
     Dosage: UNKNOWN
     Route: 065
  2. PANTOPRAZOLE [Suspect]
     Active Substance: PANTOPRAZOLE
     Indication: PRODUCT USED FOR UNKNOWN INDICATION
     Dosage: UNKNOWN
     Route: 065
  3. CEFAZOLIN [Suspect]
     Active Substance: CEFAZOLIN
     Indication: COLITIS
     Dosage: UNKNOWN
     Route: 065

REACTIONS (5)
  - Megacolon [Unknown]
  - Abdominal distension [Unknown]
  - Clostridium difficile infection [Unknown]
  - Constipation [Unknown]
  - Multiple organ dysfunction syndrome [Fatal]
